FAERS Safety Report 20850630 (Version 1)
Quarter: 2022Q2

REPORT INFORMATION
  Report Type: Spontaneous
  Country: ES (occurrence: ES)
  Receive Date: 20220519
  Receipt Date: 20220519
  Transmission Date: 20220721
  Serious: Yes (Hospitalization)
  Sender: FDA-Public Use
  Company Number: None

PATIENT
  Age: 86 Year
  Sex: Male

DRUGS (11)
  1. TRAMADOL HYDROCHLORIDE [Suspect]
     Active Substance: TRAMADOL HYDROCHLORIDE
     Indication: Osteoarthritis
     Dosage: 37.5 MILLIGRAM, EVERY 8 HRS
     Route: 048
     Dates: start: 20201213, end: 20201215
  2. RANEXA [RANOLAZINE] [Concomitant]
     Indication: Cardiovascular disorder
     Dosage: 750 MILLIGRAM, EVERY 12 HRS
     Route: 048
     Dates: start: 20200710
  3. ISOSORBIDE MONONITRATE [Concomitant]
     Active Substance: ISOSORBIDE MONONITRATE
     Indication: Cardiovascular disorder
     Dosage: UNK
     Route: 048
     Dates: start: 20200710
  4. BECLOMETHASONE DIPROPIONATE\FORMOTEROL FUMARATE [Concomitant]
     Active Substance: BECLOMETHASONE DIPROPIONATE\FORMOTEROL FUMARATE
     Indication: Bronchitis chronic
     Dosage: 2 UNK, EVERY 12 HRS
     Route: 050
     Dates: start: 20180430
  5. OMEPRAZOLE [Concomitant]
     Active Substance: OMEPRAZOLE
     Indication: Gastrooesophageal reflux disease
     Dosage: UNK
     Route: 048
     Dates: start: 20191210
  6. CETIRIZINA MYLAN [Concomitant]
     Indication: Pharyngitis
     Dosage: UNK
     Route: 048
     Dates: start: 20180806
  7. TAMSULOSINA STADA [Concomitant]
     Indication: Benign prostatic hyperplasia
     Dosage: UNK
     Route: 048
     Dates: start: 20180307
  8. BUDESONIDA NASAL ALDO UNION [Concomitant]
     Indication: Rhinitis
     Dosage: 200 MICROGRAM, 1/DAY
     Route: 045
     Dates: start: 20200912
  9. PARACETAMOL KERN PHARMA [Concomitant]
     Indication: Osteoarthritis
     Dosage: UNK
     Route: 048
     Dates: start: 20170531
  10. ASPIRIN\ATORVASTATIN CALCIUM\RAMIPRIL [Concomitant]
     Active Substance: ASPIRIN\ATORVASTATIN CALCIUM\RAMIPRIL
     Indication: Cardiovascular disorder
     Dosage: 1 DOSAGE FORM
     Route: 048
     Dates: start: 20150626
  11. SPIRIVA RESPIMAT [Concomitant]
     Active Substance: TIOTROPIUM BROMIDE
     Indication: Bronchitis chronic
     Dosage: 2 UNK, 1/DAY
     Route: 050
     Dates: start: 20200117

REACTIONS (1)
  - Disorientation [Recovered/Resolved]

NARRATIVE: CASE EVENT DATE: 20201215
